FAERS Safety Report 18131184 (Version 1)
Quarter: 2020Q3

REPORT INFORMATION
  Report Type: Spontaneous
  Country: US (occurrence: US)
  Receive Date: 20200810
  Receipt Date: 20200810
  Transmission Date: 20201103
  Serious: No
  Sender: FDA-Public Use
  Company Number: US-AMNEAL PHARMACEUTICALS-2020-AMRX-01432

PATIENT
  Age: 70 Year
  Sex: Female

DRUGS (3)
  1. METAXALONE. [Suspect]
     Active Substance: METAXALONE
     Indication: SPONDYLITIS
     Dosage: 1 TABLETS, DAILY
     Route: 048
     Dates: start: 202003
  2. METAXALONE. [Suspect]
     Active Substance: METAXALONE
     Dosage: 2 TABLETS, DAILY
     Route: 048
  3. METAXALONE. [Suspect]
     Active Substance: METAXALONE
     Dosage: 4 TABLETS AS NEEDED
     Route: 048

REACTIONS (3)
  - Drug ineffective [Unknown]
  - Product substitution issue [Unknown]
  - Nervousness [Recovered/Resolved]
